FAERS Safety Report 7965760-1 (Version None)
Quarter: 2011Q4

REPORT INFORMATION
  Report Type: 
  Country: None (occurrence: None)
  Receive Date: 20111208
  Receipt Date: 20111202
  Transmission Date: 20120403
  Serious: Yes (Hospitalization)
  Sender: FDA-Public Use
  Company Number: US-ELI_LILLY_AND_COMPANY-US201112001326

PATIENT
  Sex: Male

DRUGS (6)
  1. HUMALOG [Suspect]
     Indication: DIABETES MELLITUS
     Dosage: UNK
  2. HUMULIN 70/30 [Suspect]
     Indication: DIABETES MELLITUS
     Dosage: UNK
  3. HUMULIN R [Suspect]
     Indication: DIABETES MELLITUS
     Dosage: UNK
  4. NOVOLIN 70/30 [Concomitant]
     Dosage: UNK
  5. HUMALOG [Suspect]
     Dosage: 75 U, QD
  6. NOVOLOG [Concomitant]
     Dosage: UNK

REACTIONS (4)
  - FEELING ABNORMAL [None]
  - BLOOD GLUCOSE INCREASED [None]
  - ADVERSE DRUG REACTION [None]
  - HOSPITALISATION [None]
